FAERS Safety Report 21492149 (Version 1)
Quarter: 2022Q4

REPORT INFORMATION
  Report Type: Spontaneous
  Country: US (occurrence: US)
  Receive Date: 20221021
  Receipt Date: 20221021
  Transmission Date: 20230112
  Serious: Yes (Other)
  Sender: FDA-Public Use
  Company Number: US-NOVARTISPH-NVSC2022US236569

PATIENT
  Age: 76 Year
  Sex: Male
  Weight: 53.97 kg

DRUGS (1)
  1. LEQVIO [Suspect]
     Active Substance: INCLISIRAN SODIUM
     Indication: Hyperlipidaemia
     Dosage: 284 MG, OTHER, (INITIAL DOSE, MONTH 3 AND TWICE YEARLY THERE AFTER)
     Route: 058
     Dates: start: 202209, end: 20221013

REACTIONS (1)
  - Pain [Recovering/Resolving]
